FAERS Safety Report 17532698 (Version 1)
Quarter: 2020Q1

REPORT INFORMATION
  Report Type: Spontaneous
  Country: US (occurrence: US)
  Receive Date: 20200305
  Receipt Date: 20200305
  Transmission Date: 20200409
  Serious: Yes (Other)
  Sender: FDA-Public Use
  Company Number: 1626962-2020-00001

PATIENT

DRUGS (1)
  1. NERVE PAIN RELIEF (NDC 62795-1132-2) [Suspect]
     Active Substance: HOMEOPATHICS

REACTIONS (5)
  - Vertigo [None]
  - Headache [None]
  - Back pain [None]
  - Self-medication [None]
  - Anxiety [None]
